FAERS Safety Report 25412574 (Version 1)
Quarter: 2025Q2

REPORT INFORMATION
  Report Type: Spontaneous
  Country: US (occurrence: None)
  Receive Date: 20250607
  Receipt Date: 20250607
  Transmission Date: 20250716
  Serious: No
  Sender: FDA-CTU
  Company Number: None

PATIENT

DRUGS (1)
  1. DYSPORT [Suspect]
     Active Substance: ABOBOTULINUMTOXINA
     Dates: start: 20250531

REACTIONS (6)
  - Pyrexia [None]
  - Dysphonia [None]
  - Aphonia [None]
  - Influenza like illness [None]
  - Oropharyngeal pain [None]
  - Lower respiratory tract infection [None]

NARRATIVE: CASE EVENT DATE: 20250603
